FAERS Safety Report 12477359 (Version 1)
Quarter: 2016Q2

REPORT INFORMATION
  Report Type: Report from Study
  Country: US (occurrence: US)
  Receive Date: 20160617
  Receipt Date: 20160617
  Transmission Date: 20160815
  Serious: Yes (Other)
  Sender: FDA-Public Use
  Company Number: US-GILEAD-2016-0196964

PATIENT
  Age: 56 Year
  Sex: Female

DRUGS (2)
  1. LEDIPASVIR/SOFOSBUVIR [Suspect]
     Active Substance: LEDIPASVIR\SOFOSBUVIR
     Indication: CHRONIC HEPATITIS C
     Dosage: 1 DF, QD
     Route: 048
     Dates: start: 20160201
  2. GEODON [Concomitant]
     Active Substance: ZIPRASIDONE HYDROCHLORIDE\ZIPRASIDONE MESYLATE
     Indication: PRODUCT USED FOR UNKNOWN INDICATION
     Dosage: UNK
     Route: 065

REACTIONS (8)
  - Bedridden [Not Recovered/Not Resolved]
  - Blood disorder [Unknown]
  - Asthenia [Unknown]
  - Cardiovascular disorder [Unknown]
  - Tremor [Unknown]
  - Oxygen consumption decreased [Unknown]
  - Mental disorder [Not Recovered/Not Resolved]
  - Fatigue [Unknown]
